FAERS Safety Report 21841685 (Version 1)
Quarter: 2023Q1

REPORT INFORMATION
  Report Type: Spontaneous
  Country: US (occurrence: US)
  Receive Date: 20230110
  Receipt Date: 20230110
  Transmission Date: 20230418
  Serious: No
  Sender: FDA-Public Use
  Company Number: US-MYLANLABS-2022M1146186

PATIENT
  Age: 13 Year
  Sex: Female
  Weight: 47.63 kg

DRUGS (3)
  1. XULANE [Suspect]
     Active Substance: ETHINYL ESTRADIOL\NORELGESTROMIN
     Indication: Product used for unknown indication
     Dosage: 0.15/0.035 MICROGRAM
     Route: 062
     Dates: start: 20221204
  2. XULANE [Suspect]
     Active Substance: ETHINYL ESTRADIOL\NORELGESTROMIN
     Dosage: 0.15/0.035 MICROGRAM, EVENING
     Route: 062
     Dates: start: 20221204
  3. XULANE [Suspect]
     Active Substance: ETHINYL ESTRADIOL\NORELGESTROMIN
     Dosage: 0.15/0.035 MICROGRAM
     Route: 062
     Dates: start: 20221205

REACTIONS (2)
  - Product adhesion issue [Unknown]
  - Product dose omission issue [Unknown]

NARRATIVE: CASE EVENT DATE: 20221204
